FAERS Safety Report 14085676 (Version 1)
Quarter: 2017Q4

REPORT INFORMATION
  Report Type: Spontaneous
  Country: US (occurrence: US)
  Receive Date: 20171013
  Receipt Date: 20171013
  Transmission Date: 20180321
  Serious: Yes (Other)
  Sender: FDA-Public Use
  Company Number: US-ROCHE-2004061

PATIENT
  Sex: Female

DRUGS (1)
  1. SOMATROPIN. [Suspect]
     Active Substance: SOMATROPIN
     Indication: ENZYME ABNORMALITY
     Route: 065

REACTIONS (4)
  - Intentional product use issue [Unknown]
  - Diabetic ketoacidosis [Unknown]
  - Off label use [Unknown]
  - Diabetes mellitus [Recovering/Resolving]
